FAERS Safety Report 9594816 (Version 1)
Quarter: 2013Q4

REPORT INFORMATION
  Report Type: Spontaneous
  Country: US (occurrence: None)
  Receive Date: 20131001
  Receipt Date: 20131001
  Transmission Date: 20140711
  Serious: Yes (Other)
  Sender: FDA-Public Use
  Company Number: 2012BAX026131

PATIENT
  Age: 64 Year
  Sex: Female
  Weight: 68.18 kg

DRUGS (2)
  1. GAMMAGARD S/D [Suspect]
     Indication: PRIMARY IMMUNODEFICIENCY SYNDROME
     Dosage: 70 GM 1 IN 1 WK
     Route: 042
     Dates: start: 20121130
  2. ACYCLOVIR [Concomitant]

REACTIONS (6)
  - Meningitis aseptic [None]
  - Pain [None]
  - Migraine [None]
  - Neck pain [None]
  - Nausea [None]
  - Epigastric discomfort [None]
